FAERS Safety Report 4900443-3 (Version None)
Quarter: 2006Q1

REPORT INFORMATION
  Report Type: 
  Country: None (occurrence: None)
  Receive Date: 20060126
  Receipt Date: 20050902
  Transmission Date: 20060701
  Serious: Yes (Other)
  Sender: FDA-Public Use
  Company Number: USA0509107284

PATIENT
  Age: 7 Year
  Sex: Male

DRUGS (2)
  1. STRATTERA [Suspect]
     Indication: DISTURBANCE IN ATTENTION
     Dosage: 10 MG DAILY (1/D)
     Dates: start: 20050827
  2. METADATE (METHYLPHENIDATE HYDROCHLORIDE) [Concomitant]

REACTIONS (11)
  - ABNORMAL BEHAVIOUR [None]
  - ARTHRALGIA [None]
  - DRUG INEFFECTIVE [None]
  - FATIGUE [None]
  - HEART RATE INCREASED [None]
  - HEART RATE IRREGULAR [None]
  - LETHARGY [None]
  - MOOD SWINGS [None]
  - NAUSEA [None]
  - PERSONALITY CHANGE [None]
  - STOMACH DISCOMFORT [None]
